FAERS Safety Report 9296741 (Version 1)
Quarter: 2013Q2

REPORT INFORMATION
  Report Type: Spontaneous
  Country: DE (occurrence: DE)
  Receive Date: 20130517
  Receipt Date: 20130517
  Transmission Date: 20140414
  Serious: Yes (Other)
  Sender: FDA-Public Use
  Company Number: DE-UCBSA-085987

PATIENT
  Age: 56 Year
  Sex: Female
  Weight: 78 kg

DRUGS (1)
  1. XYZAL [Suspect]
     Indication: SEASONAL ALLERGY
     Dosage: 1 TABLET ONE DAILY
     Route: 048
     Dates: start: 20130415, end: 201304

REACTIONS (3)
  - Lip swelling [Recovered/Resolved]
  - Oedema mouth [Recovered/Resolved]
  - Dry mouth [Recovered/Resolved]
